FAERS Safety Report 17913459 (Version 2)
Quarter: 2020Q4

REPORT INFORMATION
  Report Type: Spontaneous
  Country: US (occurrence: US)
  Receive Date: 20200618
  Receipt Date: 20201218
  Transmission Date: 20210113
  Serious: No
  Sender: FDA-Public Use
  Company Number: US-THERAPEUTICSMD-2020TMD02255

PATIENT
  Age: 49 Year
  Sex: Female
  Weight: 58.5 kg

DRUGS (7)
  1. IMVEXXY [Suspect]
     Active Substance: ESTRADIOL
     Indication: HOT FLUSH
  2. IMVEXXY [Suspect]
     Active Substance: ESTRADIOL
     Indication: VULVOVAGINAL DRYNESS
  3. IMVEXXY [Suspect]
     Active Substance: ESTRADIOL
     Indication: DEPRESSION
     Dosage: 10 ?G, 2X/WEEK BEFORE BED
     Route: 067
     Dates: start: 2018
  4. IMVEXXY [Suspect]
     Active Substance: ESTRADIOL
     Indication: MENOPAUSE
  5. IMVEXXY [Suspect]
     Active Substance: ESTRADIOL
     Indication: FATIGUE
  6. PAIN MEDICATION [Concomitant]
     Active Substance: UNSPECIFIED INGREDIENT
  7. IMVEXXY [Suspect]
     Active Substance: ESTRADIOL
     Indication: MOOD SWINGS

REACTIONS (8)
  - Drug ineffective for unapproved indication [Not Recovered/Not Resolved]
  - Vulvovaginal dryness [Recovered/Resolved]
  - Product dose omission issue [Recovered/Resolved]
  - Vulvovaginal mycotic infection [Recovered/Resolved]
  - Intentional dose omission [Recovered/Resolved]
  - Mood swings [Not Recovered/Not Resolved]
  - Vulvovaginal discomfort [Recovered/Resolved]
  - Product dispensing issue [Not Recovered/Not Resolved]

NARRATIVE: CASE EVENT DATE: 20201113
